FAERS Safety Report 8743899 (Version 3)
Quarter: 2012Q4

REPORT INFORMATION
  Report Type: 
  Country: US (occurrence: US)
  Receive Date: 20120824
  Receipt Date: 20120928
  Transmission Date: 20130627
  Serious: Yes (Hospitalization, Other)
  Sender: FDA-Public Use
  Company Number: US-009507513-2011SP053028

PATIENT

DRUGS (3)
  1. NUVARING [Suspect]
     Indication: CONTRACEPTION
     Dosage: UNK
     Route: 067
     Dates: start: 20090123, end: 20090524
  2. AMBIEN [Suspect]
     Indication: PRODUCT USED FOR UNKNOWN INDICATION
     Dosage: UNK
     Dates: start: 20090523
  3. LEXAPRO [Concomitant]
     Indication: PRODUCT USED FOR UNKNOWN INDICATION
     Dosage: 10 mg, qd
     Route: 048
     Dates: start: 2007

REACTIONS (20)
  - Systemic lupus erythematosus [Unknown]
  - Pulmonary embolism [Recovering/Resolving]
  - Drug hypersensitivity [Unknown]
  - Vomiting [Unknown]
  - Asthma exercise induced [Recovered/Resolved]
  - Sinus congestion [Unknown]
  - Pharyngitis [Unknown]
  - Otitis media acute [Unknown]
  - Infectious mononucleosis [Unknown]
  - Anaemia [Unknown]
  - Upper limb fracture [Unknown]
  - Headache [Unknown]
  - Varicella [Unknown]
  - Anxiety [Recovering/Resolving]
  - Bipolar disorder [Unknown]
  - Urinary tract infection [Recovered/Resolved]
  - Oral herpes [Unknown]
  - Genital lesion [Unknown]
  - Depression [Unknown]
  - Sexual abuse [Unknown]
